FAERS Safety Report 4610523-8 (Version None)
Quarter: 2005Q2

REPORT INFORMATION
  Report Type: 
  Country: None (occurrence: None)
  Receive Date: 20050301
  Receipt Date: 20041129
  Transmission Date: 20051028
  Serious: No
  Sender: FDA-Public Use
  Company Number: WAES 0411USA04173

PATIENT
  Age: 88 Year
  Sex: Female

DRUGS (8)
  1. ZETIA [Suspect]
     Dosage: 10 MG/DAILY/PO
     Route: 048
     Dates: start: 20040601, end: 20041122
  2. NIASPAN [Concomitant]
  3. PRILOSEC [Concomitant]
  4. (THERAPY UNSPECIFIED) [Concomitant]
  5. ASPIRIN [Concomitant]
  6. FUROSEMIDE [Concomitant]
  7. ISOSORBIDE [Concomitant]
  8. SOTALOL HCL [Concomitant]

REACTIONS (1)
  - LIVER DISORDER [None]
